FAERS Safety Report 21440125 (Version 1)
Quarter: 2022Q4

REPORT INFORMATION
  Report Type: Spontaneous
  Country: US (occurrence: US)
  Receive Date: 20221011
  Receipt Date: 20221011
  Transmission Date: 20230112
  Serious: No
  Sender: FDA-Public Use
  Company Number: US-PFIZER INC-202201213736

PATIENT
  Age: 77 Year
  Sex: Female
  Weight: 53.52 kg

DRUGS (2)
  1. AMIODARONE HYDROCHLORIDE [Suspect]
     Active Substance: AMIODARONE HYDROCHLORIDE
     Indication: Cardiac disorder
     Dosage: UNK
  2. AMIODARONE HYDROCHLORIDE [Suspect]
     Active Substance: AMIODARONE HYDROCHLORIDE
     Indication: Atrial fibrillation

REACTIONS (2)
  - Drug level increased [Unknown]
  - Memory impairment [Unknown]
